FAERS Safety Report 4273675-8 (Version None)
Quarter: 2004Q1

REPORT INFORMATION
  Report Type: 
  Country: None (occurrence: None)
  Receive Date: 20040116
  Receipt Date: 20040116
  Transmission Date: 20041129
  Serious: Yes (Other)
  Sender: FDA-Public Use
  Company Number: None

PATIENT
  Sex: Male
  Weight: 83.9154 kg

DRUGS (1)
  1. MIDAZOLAM HCL [Suspect]
     Indication: OESOPHAGOGASTRODUODENOSCOPY
     Dosage: 2MG IVP
     Route: 042
     Dates: start: 20040115

REACTIONS (1)
  - DRUG INEFFECTIVE [None]
